FAERS Safety Report 4925293-3 (Version None)
Quarter: 2006Q1

REPORT INFORMATION
  Report Type: 
  Country: None (occurrence: None)
  Receive Date: 20060228
  Receipt Date: 20060126
  Transmission Date: 20060701
  Serious: Yes (Hospitalization)
  Sender: FDA-Public Use
  Company Number: GB-GLAXOSMITHKLINE-B0408074A

PATIENT
  Sex: Male

DRUGS (1)
  1. SEROXAT [Suspect]
     Dosage: 30MG PER DAY

REACTIONS (3)
  - DRUG EXPOSURE DURING PREGNANCY [None]
  - ERYTHEMA TOXICUM NEONATORUM [None]
  - RASH [None]
